FAERS Safety Report 7487295-5 (Version None)
Quarter: 2011Q2

REPORT INFORMATION
  Report Type: 
  Country: None (occurrence: None)
  Receive Date: 20110518
  Receipt Date: 20110405
  Transmission Date: 20111010
  Serious: Yes (Hospitalization)
  Sender: FDA-Public Use
  Company Number: US-BAYER-201025553NA

PATIENT
  Age: 25 Year
  Sex: Female
  Weight: 56.689 kg

DRUGS (7)
  1. ZOLPIDEM [Concomitant]
  2. PREVACID [Concomitant]
     Indication: ABDOMINAL PAIN UPPER
     Dosage: UNK
     Dates: start: 20070101, end: 20090101
  3. ZANTAC [Concomitant]
  4. PROTONIX [Concomitant]
     Dosage: UNK
     Dates: start: 20080101
  5. YASMIN [Suspect]
     Indication: CONTRACEPTION
     Dosage: UNK UNK, UNK
     Route: 048
     Dates: start: 20030501, end: 20050901
  6. TRINESSA [Concomitant]
     Dosage: UNK
     Dates: start: 20050101, end: 20060830
  7. YAZ [Suspect]
     Indication: CONTRACEPTION
     Dosage: UNK UNK, QD
     Route: 048
     Dates: start: 20060101, end: 20091101

REACTIONS (8)
  - CHOLELITHIASIS [None]
  - CHOLECYSTITIS CHRONIC [None]
  - GALLBLADDER INJURY [None]
  - GALLBLADDER DISORDER [None]
  - NAUSEA [None]
  - ABDOMINAL PAIN [None]
  - MEDICAL DIET [None]
  - DYSPEPSIA [None]
